FAERS Safety Report 9272361 (Version 1)
Quarter: 2013Q2

REPORT INFORMATION
  Report Type: Spontaneous
  Country: US (occurrence: US)
  Receive Date: 20130506
  Receipt Date: 20130506
  Transmission Date: 20140414
  Serious: No
  Sender: FDA-Public Use
  Company Number: US-ASTRAZENECA-2013SE11915

PATIENT
  Age: 62 Year
  Sex: Female

DRUGS (3)
  1. PRILOSEC OTC WILDBERRY FLAVOR [Suspect]
     Route: 048
     Dates: start: 20130207
  2. ANTIHYPERTENSIVES [Concomitant]
  3. CHOLESTEROL- AND TRIGLYCERIDE REDUCERS [Concomitant]

REACTIONS (2)
  - Skin mass [Not Recovered/Not Resolved]
  - Urticaria [Not Recovered/Not Resolved]
